FAERS Safety Report 14250233 (Version 2)
Quarter: 2018Q1

REPORT INFORMATION
  Report Type: Spontaneous
  Country: US (occurrence: US)
  Receive Date: 20171205
  Receipt Date: 20180223
  Transmission Date: 20180508
  Serious: No
  Sender: FDA-Public Use
  Company Number: US-LUPIN PHARMACEUTICALS INC.-2017-06663

PATIENT
  Sex: Female
  Weight: 43.84 kg

DRUGS (3)
  1. VANCOMYCIN HYDROCHLORIDE CAPSULES USP 250 MG [Suspect]
     Active Substance: VANCOMYCIN HYDROCHLORIDE
     Indication: CLOSTRIDIUM DIFFICILE COLITIS
     Dosage: 250 MG, TID-QID
     Route: 048
     Dates: start: 201710, end: 20171105
  2. GABAPENTIN. [Concomitant]
     Active Substance: GABAPENTIN
     Indication: NERVE INJURY
     Dosage: 600 MG, TID, STARTED IN APPROXIMATELY 2012
     Route: 048
  3. OXYCODONE [Concomitant]
     Active Substance: OXYCODONE
     Indication: PAIN
     Dosage: 5 MG, Q4H PER 24HOURS. DAILY DOSE 30 MG, STARTED IN APPROXIMATELY 2014
     Route: 048

REACTIONS (6)
  - Diarrhoea [Recovering/Resolving]
  - Burning sensation [Recovered/Resolved]
  - Gait inability [Unknown]
  - Drug ineffective [Unknown]
  - Somnolence [Recovering/Resolving]
  - Fatigue [Unknown]
